FAERS Safety Report 14419701 (Version 5)
Quarter: 2018Q1

REPORT INFORMATION
  Report Type: Spontaneous
  Country: US (occurrence: US)
  Receive Date: 20180122
  Receipt Date: 20180306
  Transmission Date: 20180509
  Serious: No
  Sender: FDA-Public Use
  Company Number: US-PFIZER INC-2018017795

PATIENT
  Age: 80 Year
  Sex: Female
  Weight: 60.7 kg

DRUGS (6)
  1. RAMIPRIL. [Concomitant]
     Active Substance: RAMIPRIL
     Indication: HYPERTENSION
     Dosage: UNK
     Route: 065
  2. ELIQUIS [Suspect]
     Active Substance: APIXABAN
     Indication: CEREBROVASCULAR ACCIDENT PROPHYLAXIS
     Dosage: 5 MG, BID
     Route: 048
     Dates: start: 201706
  3. PREVACID [Concomitant]
     Active Substance: LANSOPRAZOLE
     Dosage: 20 MG, QD
     Route: 065
  4. AMIODARONE HCL [Suspect]
     Active Substance: AMIODARONE HYDROCHLORIDE
     Dosage: UNK
     Route: 065
  5. FLUCONAZOLE. [Concomitant]
     Active Substance: FLUCONAZOLE
     Indication: FUNGAL INFECTION
     Dosage: 150 MG, QWK
     Route: 065
     Dates: start: 201711
  6. CARDIA [Concomitant]
     Active Substance: AJMALINE
     Dosage: UNK
     Route: 065

REACTIONS (10)
  - Rash [Unknown]
  - Vomiting [Recovering/Resolving]
  - Pruritus [Unknown]
  - Back pain [Unknown]
  - Polycythaemia [Unknown]
  - Alopecia [Recovering/Resolving]
  - Urticaria [Unknown]
  - Weight decreased [Recovering/Resolving]
  - Dizziness [Recovering/Resolving]
  - Paraesthesia [Unknown]
